FAERS Safety Report 16052600 (Version 1)
Quarter: 2019Q1

REPORT INFORMATION
  Report Type: Spontaneous
  Country: US (occurrence: US)
  Receive Date: 20190308
  Receipt Date: 20190308
  Transmission Date: 20190418
  Serious: Yes (Other)
  Sender: FDA-Public Use
  Company Number: US-REGENERON PHARMACEUTICALS, INC.-2019-21332

PATIENT

DRUGS (2)
  1. EYLEA [Suspect]
     Active Substance: AFLIBERCEPT
     Indication: CHOROIDAL NEOVASCULARISATION
     Dosage: Q4W, OD
     Route: 031
     Dates: start: 20190204, end: 20190204
  2. EYLEA [Suspect]
     Active Substance: AFLIBERCEPT
     Indication: NEOVASCULAR AGE-RELATED MACULAR DEGENERATION
     Dosage: Q4W, OU
     Route: 031
     Dates: start: 2015

REACTIONS (2)
  - Non-infectious endophthalmitis [Unknown]
  - Vitrectomy [Unknown]

NARRATIVE: CASE EVENT DATE: 20190207
